FAERS Safety Report 4617901-1 (Version None)
Quarter: 2005Q1

REPORT INFORMATION
  Report Type: 
  Country: None (occurrence: None)
  Receive Date: 20050322
  Receipt Date: 20050315
  Transmission Date: 20050727
  Serious: Yes (Hospitalization)
  Sender: FDA-Public Use
  Company Number: NLWYE498914MAR05

PATIENT
  Age: 25 Year
  Sex: Male

DRUGS (2)
  1. EFFEXOR XR [Suspect]
     Dosage: 75 MG 1X PER 1 DAY ORAL
     Route: 048
     Dates: end: 20050101
  2. EFFEXOR [Suspect]
     Dosage: 37.5 MG 1X PER 1 DAY ORAL
     Route: 048
     Dates: end: 20050101

REACTIONS (1)
  - CARDIAC FAILURE [None]
